FAERS Safety Report 4564042-8 (Version None)
Quarter: 2005Q1

REPORT INFORMATION
  Report Type: 
  Country: None (occurrence: None)
  Receive Date: 20050128
  Receipt Date: 20040915
  Transmission Date: 20050727
  Serious: No
  Sender: FDA-Public Use
  Company Number: US-BRISTOL-MYERS SQUIBB COMPANY-12701819

PATIENT
  Sex: Female

DRUGS (1)
  1. CEFZIL [Suspect]

REACTIONS (1)
  - TYPE IV HYPERSENSITIVITY REACTION [None]
